FAERS Safety Report 22002324 (Version 1)
Quarter: 2023Q1

REPORT INFORMATION
  Report Type: Spontaneous
  Country: US (occurrence: US)
  Receive Date: 20230217
  Receipt Date: 20230217
  Transmission Date: 20230417
  Serious: Yes (Hospitalization)
  Sender: FDA-Public Use
  Company Number: US-drreddys-LIT/USA/23/0161185

PATIENT
  Age: 60 Year
  Sex: Female

DRUGS (6)
  1. ATORVASTATIN [Suspect]
     Active Substance: ATORVASTATIN
     Indication: Arthritis bacterial
  2. CEFTRIAXONE [Suspect]
     Active Substance: CEFTRIAXONE
     Indication: Arthritis bacterial
     Route: 042
  3. DOXYCYCLINE [Suspect]
     Active Substance: DOXYCYCLINE
     Indication: Arthritis bacterial
     Route: 048
  4. VEDOLIZUMAB [Suspect]
     Active Substance: VEDOLIZUMAB
     Indication: Arthritis bacterial
  5. ACETAMINOPHEN [Suspect]
     Active Substance: ACETAMINOPHEN
     Indication: Arthritis bacterial
  6. FUROSEMIDE [Suspect]
     Active Substance: FUROSEMIDE
     Indication: Arthritis bacterial

REACTIONS (2)
  - Pancreatitis [Recovering/Resolving]
  - Product use in unapproved indication [Unknown]
